FAERS Safety Report 9745561 (Version 1)
Quarter: 2013Q4

REPORT INFORMATION
  Report Type: Spontaneous
  Country: FR (occurrence: FR)
  Receive Date: 20131211
  Receipt Date: 20131211
  Transmission Date: 20140711
  Serious: Yes (Hospitalization)
  Sender: FDA-Public Use
  Company Number: FR-PFIZER INC-2013345553

PATIENT
  Age: 69 Year
  Sex: Female

DRUGS (3)
  1. ARACYTINE [Suspect]
     Indication: ACUTE MYELOID LEUKAEMIA
     Dosage: 300 MG, 1X/DAY
     Route: 042
     Dates: start: 20130808, end: 20130811
  2. ZAVEDOS [Suspect]
     Indication: ACUTE MYELOID LEUKAEMIA
     Dosage: 20 MG, 1X/DAY
     Route: 042
     Dates: start: 20130809, end: 20130812
  3. ZOPHREN [Concomitant]
     Indication: PREMEDICATION
     Dosage: 8 MG, DAILY

REACTIONS (2)
  - Bone marrow failure [Recovered/Resolved]
  - Aspergillus infection [Not Recovered/Not Resolved]
